FAERS Safety Report 8798939 (Version 1)
Quarter: 2012Q4

REPORT INFORMATION
  Report Type: Spontaneous
  Country: US (occurrence: None)
  Receive Date: 20120918
  Receipt Date: 20120918
  Transmission Date: 20130627
  Serious: Yes (Other)
  Sender: FDA-Public Use
  Company Number: None

PATIENT
  Age: 35 Year
  Sex: Female
  Weight: 54.43 kg

DRUGS (1)
  1. ORTHO MICRONOR [Suspect]
     Indication: BIRTH CONTROL
     Dosage: 1 pill daily po
     Route: 048
     Dates: start: 20111007, end: 20120330

REACTIONS (23)
  - Emotional disorder [None]
  - Panic attack [None]
  - Palpitations [None]
  - Middle insomnia [None]
  - Malaise [None]
  - Anxiety [None]
  - Fear [None]
  - Impaired driving ability [None]
  - Paranoia [None]
  - Fatigue [None]
  - Arthralgia [None]
  - Depression [None]
  - Nausea [None]
  - Diarrhoea [None]
  - Decreased appetite [None]
  - Progesterone decreased [None]
  - Dehydroepiandrosterone decreased [None]
  - Blood testosterone decreased [None]
  - Blood cortisol decreased [None]
  - Impaired work ability [None]
  - Economic problem [None]
  - Feeling abnormal [None]
  - Social avoidant behaviour [None]
